FAERS Safety Report 8590143 (Version 2)
Quarter: 2012Q4

REPORT INFORMATION
  Report Type: 
  Country: JP (occurrence: JP)
  Receive Date: 20120601
  Receipt Date: 20121029
  Transmission Date: 20130627
  Serious: Yes (Other)
  Sender: FDA-Public Use
  Company Number: JP-ASTELLAS-2012JP004616

PATIENT
  Age: 64 Year
  Sex: Female
  Weight: 63.6 kg

DRUGS (8)
  1. VESICARE [Suspect]
     Indication: POLLAKIURIA
     Dosage: 5 mg, UID/QD
     Route: 048
     Dates: start: 20120417, end: 20120523
  2. OLMETEC [Concomitant]
     Indication: HYPERTENSION
     Dosage: 20 mg, UID/QD
     Route: 048
     Dates: start: 20090512
  3. PLAVIX [Concomitant]
     Indication: CEREBRAL INFARCTION
     Dosage: 75 mg, UID/QD
     Route: 048
     Dates: start: 20070220
  4. ATELEC [Concomitant]
     Indication: HYPERTENSION
     Dosage: 10 mg, UID/QD
     Route: 048
     Dates: start: 20090512
  5. CRESTOR [Concomitant]
     Indication: DYSLIPIDAEMIA
     Dosage: 2.5 mg, UID/QD
     Route: 048
     Dates: start: 20090512
  6. TAKEPRON [Concomitant]
     Indication: GASTROOESOPHAGEAL REFLUX DISEASE
     Dosage: 15 mg, UID/QD
     Route: 048
     Dates: start: 20090512
  7. METHYCOBAL [Concomitant]
     Indication: DIABETIC NEUROPATHY
     Dosage: 500 ug, tid
     Route: 048
     Dates: start: 20090512
  8. HUMALOG MIX [Concomitant]
     Indication: TYPE 2 DIABETES MELLITUS
     Dosage: 12 IU, Unknown/D
     Route: 058
     Dates: start: 20101219

REACTIONS (1)
  - Blood glucose increased [Recovered/Resolved]
